FAERS Safety Report 20006424 (Version 1)
Quarter: 2021Q4

REPORT INFORMATION
  Report Type: Spontaneous
  Country: US (occurrence: US)
  Receive Date: 20211028
  Receipt Date: 20211028
  Transmission Date: 20220303
  Serious: No
  Sender: FDA-Public Use
  Company Number: 2021A785795

PATIENT
  Age: 75 Year
  Sex: Male

DRUGS (4)
  1. SEROQUEL [Suspect]
     Active Substance: QUETIAPINE FUMARATE
     Dosage: 25.0MG UNKNOWN
     Route: 048
     Dates: start: 20210924
  2. NUPLAZID [Suspect]
     Active Substance: PIMAVANSERIN TARTRATE
     Indication: Parkinson^s disease psychosis
     Route: 065
     Dates: start: 20210922
  3. NUPLAZID [Suspect]
     Active Substance: PIMAVANSERIN TARTRATE
     Indication: Hallucination
     Route: 065
     Dates: start: 20210922
  4. NUPLAZID [Suspect]
     Active Substance: PIMAVANSERIN TARTRATE
     Indication: Delusion
     Route: 065
     Dates: start: 20210922

REACTIONS (4)
  - Confusional state [Unknown]
  - Fatigue [Unknown]
  - Gait disturbance [Unknown]
  - Delusion [Unknown]

NARRATIVE: CASE EVENT DATE: 20210901
